FAERS Safety Report 6667684-9 (Version None)
Quarter: 2010Q2

REPORT INFORMATION
  Report Type: 
  Country: None (occurrence: None)
  Receive Date: 20100401
  Receipt Date: 20100329
  Transmission Date: 20101027
  Serious: Yes (Hospitalization)
  Sender: FDA-Public Use
  Company Number: ALL1-2010-01739

PATIENT
  Age: 73 Year
  Sex: Male

DRUGS (2)
  1. FOSRENOL [Suspect]
     Indication: HYPERPHOSPHATAEMIA
     Dosage: 1000 MG. TABLET AFTER MEALS, ORAL
     Route: 048
  2. RENVELA [Concomitant]

REACTIONS (1)
  - KNEE OPERATION [None]
